FAERS Safety Report 6584133-X (Version None)
Quarter: 2010Q1

REPORT INFORMATION
  Report Type: 
  Country: None (occurrence: None)
  Receive Date: 20100216
  Receipt Date: 20100212
  Transmission Date: 20100710
  Serious: Yes (Death)
  Sender: FDA-Public Use
  Company Number: JAUK38786

PATIENT
  Sex: Male

DRUGS (3)
  1. ITRACONAZOLE [Suspect]
     Indication: PROPHYLAXIS
     Route: 048
     Dates: start: 19980212, end: 19980323
  2. CIPROFLOXACIN [Suspect]
     Indication: PROPHYLAXIS
     Route: 048
     Dates: start: 19980212, end: 19980323
  3. CO-TRIMOXAZOLE [Suspect]
     Indication: PROPHYLAXIS
     Route: 048
     Dates: start: 19980212, end: 19980323

REACTIONS (2)
  - HEPATIC FAILURE [None]
  - JAUNDICE CHOLESTATIC [None]
